FAERS Safety Report 6646700-4 (Version None)
Quarter: 2010Q1

REPORT INFORMATION
  Report Type: 
  Country: None (occurrence: None)
  Receive Date: 20100323
  Receipt Date: 20100316
  Transmission Date: 20100710
  Serious: Yes (Hospitalization)
  Sender: FDA-Public Use
  Company Number: DE-JNJFOC-20100306061

PATIENT
  Sex: Male
  Weight: 90.9 kg

DRUGS (6)
  1. REOPRO [Suspect]
     Indication: PERCUTANEOUS CORONARY INTERVENTION
     Dosage: BOLUS
     Route: 013
  2. REOPRO [Suspect]
     Indication: ACUTE MYOCARDIAL INFARCTION
     Dosage: BOLUS
     Route: 013
  3. CLOPIDOGREL [Concomitant]
  4. TORASEMIDE [Concomitant]
  5. CARVEDILOL [Concomitant]
  6. ALLOPURINOL [Concomitant]

REACTIONS (2)
  - INCORRECT ROUTE OF DRUG ADMINISTRATION [None]
  - THROMBOCYTOPENIA [None]
